FAERS Safety Report 21823344 (Version 1)
Quarter: 2023Q1

REPORT INFORMATION
  Report Type: Spontaneous
  Country: JP (occurrence: JP)
  Receive Date: 20230105
  Receipt Date: 20230105
  Transmission Date: 20230417
  Serious: Yes (Hospitalization, Other)
  Sender: FDA-Public Use
  Company Number: JP-Indivior Limited-INDV-137371-2022

PATIENT

DRUGS (12)
  1. BUPRENORPHINE HYDROCHLORIDE [Suspect]
     Active Substance: BUPRENORPHINE HYDROCHLORIDE
     Indication: Granulomatosis with polyangiitis
     Dosage: UNK
     Route: 065
  2. TRAMADOL [Concomitant]
     Active Substance: TRAMADOL
     Indication: Eye pain
     Dosage: UNK
     Route: 065
  3. TRAMADOL [Concomitant]
     Active Substance: TRAMADOL
     Indication: Dacryocystitis
  4. TRAMADOL [Concomitant]
     Active Substance: TRAMADOL
     Indication: Ear pain
  5. TRAMADOL [Concomitant]
     Active Substance: TRAMADOL
     Indication: Sinusitis
  6. PENTAZOCINE [Concomitant]
     Active Substance: PENTAZOCINE
     Indication: Ear pain
     Dosage: UNK
     Route: 065
  7. PENTAZOCINE [Concomitant]
     Active Substance: PENTAZOCINE
     Indication: Sinusitis
  8. PENTAZOCINE [Concomitant]
     Active Substance: PENTAZOCINE
     Indication: Eye pain
  9. PENTAZOCINE [Concomitant]
     Active Substance: PENTAZOCINE
     Indication: Dacryocystitis
  10. MORPHINE SULFATE [Concomitant]
     Active Substance: MORPHINE SULFATE
     Indication: Prophylaxis
     Dosage: UNK
     Route: 065
  11. MIRTAZAPINE [Concomitant]
     Active Substance: MIRTAZAPINE
     Indication: Product used for unknown indication
     Dosage: UNK
     Route: 065
  12. LEMBOREXANT [Concomitant]
     Active Substance: LEMBOREXANT
     Indication: Product used for unknown indication
     Dosage: UNK
     Route: 065

REACTIONS (3)
  - Malignant neoplasm of conjunctiva [Unknown]
  - Off label use [Recovered/Resolved]
  - Drug withdrawal syndrome [Unknown]
